FAERS Safety Report 7963967-0 (Version None)
Quarter: 2011Q4

REPORT INFORMATION
  Report Type: 
  Country: None (occurrence: None)
  Receive Date: 20111208
  Receipt Date: 20111128
  Transmission Date: 20120403
  Serious: No
  Sender: FDA-Public Use
  Company Number: US-BAYER-2011-101634

PATIENT
  Age: 21 Year
  Sex: Female
  Weight: 57.143 kg

DRUGS (1)
  1. MIRENA [Suspect]
     Indication: CONTRACEPTION
     Dosage: 20 ?G/D, UNK
     Dates: start: 20110609, end: 20111006

REACTIONS (1)
  - DEVICE EXPULSION [None]
